FAERS Safety Report 21790731 (Version 2)
Quarter: 2023Q1

REPORT INFORMATION
  Report Type: Spontaneous
  Country: US (occurrence: US)
  Receive Date: 20221228
  Receipt Date: 20230220
  Transmission Date: 20230418
  Serious: No
  Sender: FDA-Public Use
  Company Number: US-009507513-2212USA000703

PATIENT
  Sex: Male
  Weight: 1.105 kg

DRUGS (10)
  1. INVANZ [Suspect]
     Active Substance: ERTAPENEM SODIUM
     Indication: Staphylococcal bacteraemia
     Dosage: 15 MILLIGRAM/KILOGRAM, Q12H, ON DAY 6
     Route: 042
  2. INVANZ [Suspect]
     Active Substance: ERTAPENEM SODIUM
     Indication: Osteomyelitis
  3. VANCOMYCIN [Concomitant]
     Active Substance: VANCOMYCIN
     Indication: Sepsis neonatal
     Dosage: ON DAY 0
  4. PIPERACILLIN AND TAZOBACTAM [Concomitant]
     Active Substance: PIPERACILLIN SODIUM\TAZOBACTAM SODIUM
     Indication: Sepsis neonatal
     Dosage: ON DAY 0
  5. OXACILLIN [Concomitant]
     Active Substance: OXACILLIN SODIUM
     Indication: Staphylococcal bacteraemia
     Dosage: 50 MILLIGRAM/KILOGRAM, Q8H, ON DAY 1
     Route: 042
  6. OXACILLIN [Concomitant]
     Active Substance: OXACILLIN SODIUM
     Indication: Osteomyelitis
  7. DOPAMINE [Concomitant]
     Active Substance: DOPAMINE HYDROCHLORIDE
     Indication: Hypotension
     Dosage: ON DAY 2
     Route: 042
  8. GENTAMICIN [Concomitant]
     Active Substance: GENTAMICIN
     Indication: Staphylococcal bacteraemia
     Dosage: 4 MILLIGRAM/KILOGRAM, EVERY 36 HOURS
     Route: 042
  9. RIFAMPIN [Concomitant]
     Active Substance: RIFAMPIN
     Indication: Staphylococcal bacteraemia
     Dosage: 10 MILLIGRAM/KILOGRAM, Q12H; TREATMENT DAY 4
     Route: 042
  10. HYDROCORTISONE [Concomitant]
     Active Substance: HYDROCORTISONE
     Indication: Staphylococcal bacteraemia
     Dosage: 25 MILLIGRAM/SQ. METER, QD; TREATMENT DAY 4

REACTIONS (1)
  - Off label use [Unknown]
